FAERS Safety Report 5938659-X (Version None)
Quarter: 2008Q4

REPORT INFORMATION
  Report Type: 
  Country: None (occurrence: None)
  Receive Date: 20081103
  Receipt Date: 20081023
  Transmission Date: 20090506
  Serious: Yes (Life-Threatening, Hospitalization, Other)
  Sender: FDA-Public Use
  Company Number: FR-ROCHE-549563

PATIENT
  Sex: Female
  Weight: 58 kg

DRUGS (15)
  1. METHOXY POLYETHYLENE GLYCOL-EPOETIN BETA [Suspect]
     Route: 042
     Dates: start: 20070704
  2. METHOXY POLYETHYLENE GLYCOL-EPOETIN BETA [Suspect]
     Route: 042
  3. METHOXY POLYETHYLENE GLYCOL-EPOETIN BETA [Suspect]
     Route: 042
  4. METHOXY POLYETHYLENE GLYCOL-EPOETIN BETA [Suspect]
     Route: 042
     Dates: end: 20080610
  5. DARBEPOETIN ALFA [Suspect]
     Route: 042
  6. AUGMENTIN '125' [Concomitant]
     Dates: start: 20080211, end: 20080610
  7. AMIODARONE HCL [Concomitant]
     Dates: start: 20030210, end: 20080610
  8. INSULINE [Concomitant]
     Dates: start: 20060104, end: 20080610
  9. LYSINE ACETYLSALICYLATE [Concomitant]
     Dates: start: 20030210, end: 20080610
  10. PRAVASTATIN [Concomitant]
     Dates: start: 20040331, end: 20080610
  11. HEPARIN [Concomitant]
     Dates: start: 20051118, end: 20080610
  12. TRINITRINE [Concomitant]
     Dates: start: 20030210, end: 20080610
  13. SEVELAMER [Concomitant]
     Dates: start: 20050203, end: 20080610
  14. POLYSTYRENE SULFONATE [Concomitant]
     Dosage: DRUG: POLYSTYRENE SULFONATE DE SODIUM TOTAL DAILY DOSE REPORTED AS 30 G (DAYS WITHOUT DIALYSIS)
     Dates: start: 20060628, end: 20080610
  15. LEVOTHYROXINE SODIQUE [Concomitant]
     Dates: start: 20061214, end: 20080610

REACTIONS (5)
  - ACUTE HEPATIC FAILURE [None]
  - EXTREMITY NECROSIS [None]
  - HYPERKALAEMIA [None]
  - PERIPHERAL ARTERIAL OCCLUSIVE DISEASE [None]
  - POST PROCEDURAL SEPSIS [None]
